FAERS Safety Report 8297660-4 (Version None)
Quarter: 2012Q2

REPORT INFORMATION
  Report Type: 
  Country: None (occurrence: None)
  Receive Date: 20120419
  Receipt Date: 20120416
  Transmission Date: 20120825
  Serious: Yes (Death)
  Sender: FDA-Public Use
  Company Number: PHEH2012US006613

PATIENT
  Sex: Male
  Weight: 78.458 kg

DRUGS (7)
  1. EXJADE [Suspect]
     Indication: IRON OVERLOAD
     Dosage: 2000 MG QD
     Dates: start: 20110801
  2. FOLIC ACID [Concomitant]
  3. ALEVE                              /00256202/ [Concomitant]
  4. ASPIRIN [Concomitant]
  5. M.V.I. [Concomitant]
  6. REVLIMID [Concomitant]
  7. VITAMIN B-12 [Concomitant]

REACTIONS (2)
  - SEPSIS [None]
  - MULTI-ORGAN FAILURE [None]
